FAERS Safety Report 6493539-9 (Version None)
Quarter: 2009Q4

REPORT INFORMATION
  Report Type: 
  Country: None (occurrence: None)
  Receive Date: 20091209
  Receipt Date: 20091126
  Transmission Date: 20100525
  Serious: Yes (Disabling, Other)
  Sender: FDA-Public Use
  Company Number: ADR52452009

PATIENT
  Sex: Female

DRUGS (5)
  1. ALENDRONIC ACID [Suspect]
     Indication: OSTEOPOROSIS
     Dosage: 70 MG, ORAL
     Route: 048
     Dates: start: 20071107, end: 20081113
  2. BENDROFLUAZIDE [Concomitant]
  3. LOSARTAN [Concomitant]
  4. PROPRANOLOL [Concomitant]
  5. SIMVASTATIN [Concomitant]

REACTIONS (4)
  - DISEASE RECURRENCE [None]
  - DIZZINESS [None]
  - MIGRAINE [None]
  - VISUAL IMPAIRMENT [None]
